FAERS Safety Report 22225910 (Version 1)
Quarter: 2023Q2

REPORT INFORMATION
  Report Type: Spontaneous
  Country: FR (occurrence: FR)
  Receive Date: 20230419
  Receipt Date: 20230419
  Transmission Date: 20230722
  Serious: Yes (Other)
  Sender: FDA-Public Use
  Company Number: FR-TERSERA THERAPEUTICS LLC-2022TRS004307

PATIENT

DRUGS (4)
  1. PRIALT [Suspect]
     Active Substance: ZICONOTIDE ACETATE
     Indication: Pain
     Dosage: 1.865 MICROGRAM
     Route: 065
  2. PRIALT [Suspect]
     Active Substance: ZICONOTIDE ACETATE
     Dosage: 1.560 MICROGRAM
     Route: 065
  3. PRIALT [Suspect]
     Active Substance: ZICONOTIDE ACETATE
     Dosage: 1.768 MICROGRAM
     Route: 065
  4. PRIALT [Suspect]
     Active Substance: ZICONOTIDE ACETATE
     Dosage: 2.484 MICROGRAM
     Route: 065

REACTIONS (38)
  - Rectal haemorrhage [Recovered/Resolved]
  - Hallucination, auditory [Recovered/Resolved]
  - Seizure [Recovered/Resolved]
  - Erythema [Recovered/Resolved]
  - Stasis dermatitis [Recovered/Resolved]
  - Psychomotor hyperactivity [Recovered/Resolved]
  - Malaise [Recovered/Resolved]
  - Haematuria [Recovered/Resolved]
  - Night sweats [Recovered/Resolved]
  - Erythema [Recovered/Resolved]
  - Erythema [Recovered/Resolved]
  - Aggression [Recovered/Resolved]
  - Paraesthesia [Recovered/Resolved]
  - Irritability [Recovered/Resolved]
  - Agitation [Recovered/Resolved]
  - Dysuria [Recovered/Resolved]
  - Somnolence [Recovered/Resolved]
  - Oedema peripheral [Recovered/Resolved]
  - Diarrhoea [Recovered/Resolved]
  - Hallucination [Recovered/Resolved]
  - Hallucination [Recovered/Resolved]
  - Balance disorder [Recovered/Resolved]
  - Balance disorder [Unknown]
  - Memory impairment [Recovered/Resolved]
  - Memory impairment [Recovered/Resolved]
  - Insomnia [Recovered/Resolved]
  - Insomnia [Recovered/Resolved]
  - Pruritus [Recovered/Resolved]
  - Pruritus [Recovered/Resolved]
  - Paraesthesia [Recovered/Resolved]
  - Somnolence [Recovered/Resolved]
  - Oedema peripheral [Recovered/Resolved]
  - Somnolence [Recovered/Resolved]
  - Tremor [Recovered/Resolved]
  - Vertigo [Recovered/Resolved]
  - Asthenia [Recovered/Resolved]
  - Memory impairment [Recovered/Resolved]
  - Vomiting [Recovered/Resolved]

NARRATIVE: CASE EVENT DATE: 20201219
